FAERS Safety Report 9447865 (Version 1)
Quarter: 2013Q3

REPORT INFORMATION
  Report Type: Spontaneous
  Country: US (occurrence: None)
  Receive Date: 20130807
  Receipt Date: 20130807
  Transmission Date: 20140515
  Serious: Yes (Disabling)
  Sender: FDA-Public Use
  Company Number: None

PATIENT
  Age: 31 Year
  Sex: Female
  Weight: 72.58 kg

DRUGS (1)
  1. MEFLOQUINE [Suspect]
     Indication: MALARIA PROPHYLAXIS
     Dosage: 1 PILL ONCE DAILY TAKEN BY MOUTH ??DURING DEPLOYMENTS
     Route: 048

REACTIONS (6)
  - Amnesia [None]
  - Irritability [None]
  - Anger [None]
  - Photosensitivity reaction [None]
  - Balance disorder [None]
  - Somnolence [None]
